FAERS Safety Report 7164896-5 (Version None)
Quarter: 2010Q4

REPORT INFORMATION
  Report Type: 
  Country: None (occurrence: None)
  Receive Date: 20101215
  Receipt Date: 20091214
  Transmission Date: 20110411
  Serious: No
  Sender: FDA-Public Use
  Company Number: US-AMGEN-KDL380169

PATIENT

DRUGS (13)
  1. ENBREL [Suspect]
     Indication: PRODUCT USED FOR UNKNOWN INDICATION
     Dosage: 50 MG, QWK
     Route: 058
  2. DULOXETINE HYDROCHLORIDE [Concomitant]
     Dosage: 60 MG, UNK
  3. CYCLOSPORINE OPHTHALMIC EMULSION [Concomitant]
  4. ZOLPIDEM TARTRATE [Concomitant]
     Dosage: 5 MG, UNK
  5. PREDNISONE [Concomitant]
     Dosage: 5 MG, UNK
  6. GABAPENTIN [Concomitant]
     Dosage: 300 MG, UNK
  7. ETODOLAC [Concomitant]
     Dosage: 400 MG, UNK
  8. FENTANYL [Concomitant]
     Dosage: 25 A?G, UNK
  9. CYCLOBENZAPRINE [Concomitant]
     Dosage: 5 MG, UNK
  10. HYDROCODONE [Concomitant]
     Dosage: 325 MG, UNK
  11. FISH OIL [Concomitant]
     Dosage: UNK UNK, UNK
  12. MULTI-VITAMINS [Concomitant]
     Dosage: UNK UNK, UNK
  13. UNSPECIFIED MEDICATION [Concomitant]

REACTIONS (1)
  - MUSCULAR WEAKNESS [None]
